FAERS Safety Report 20700720 (Version 1)
Quarter: 2022Q2

REPORT INFORMATION
  Report Type: Other
  Country: None (occurrence: AL)
  Receive Date: 20220412
  Receipt Date: 20220412
  Transmission Date: 20220720
  Serious: No
  Sender: FDA-Public Use
  Company Number: AL-Tenshi Kaizen Private Limited-2127635

PATIENT
  Age: 29 Year
  Sex: Female

DRUGS (3)
  1. LORATADINE [Suspect]
     Active Substance: LORATADINE
     Indication: Cholestasis of pregnancy
     Route: 065
  2. URSODIOL [Suspect]
     Active Substance: URSODIOL
     Route: 065
  3. DEXAMETHASONE [Suspect]
     Active Substance: DEXAMETHASONE
     Route: 048

REACTIONS (1)
  - Maternal exposure during pregnancy [Unknown]
